FAERS Safety Report 17749361 (Version 1)
Quarter: 2020Q2

REPORT INFORMATION
  Report Type: Spontaneous
  Country: CH (occurrence: CH)
  Receive Date: 20200505
  Receipt Date: 20200505
  Transmission Date: 20200714
  Serious: Yes (Other)
  Sender: FDA-Public Use
  Company Number: CH-BAXTER-2020BAX009165

PATIENT

DRUGS (9)
  1. KENACORT [Concomitant]
     Active Substance: TRIAMCINOLONE
     Indication: PRODUCT USED FOR UNKNOWN INDICATION
     Route: 065
  2. TAMOXIFEN [Suspect]
     Active Substance: TAMOXIFEN
     Indication: MESENTERITIS
     Route: 065
     Dates: start: 2015
  3. REMICADE [Suspect]
     Active Substance: INFLIXIMAB
     Indication: MESENTERITIS
     Route: 042
     Dates: start: 20200401
  4. ENDOXAN 1 G. TROCKENSUBSTANZ ZUR INTRAVENOSEN INFUSION [Suspect]
     Active Substance: CYCLOPHOSPHAMIDE
     Indication: MESENTERITIS
     Dosage: IMPACT THERAPY
     Route: 065
     Dates: start: 201901, end: 201902
  5. METHOTREXAT [Suspect]
     Active Substance: METHOTREXATE
     Indication: MESENTERITIS
     Dosage: SUPPLEMENTED WITH REMICADE
     Route: 065
     Dates: start: 20190701
  6. AZATHIOPRINE. [Suspect]
     Active Substance: AZATHIOPRINE
     Indication: MESENTERITIS
     Route: 065
     Dates: start: 2016, end: 2016
  7. PREDNISON [Suspect]
     Active Substance: PREDNISONE
     Indication: MESENTERITIS
     Dosage: 10-15 MG / DAY
     Route: 065
  8. MYCOPHENOLATE MOFETIL. [Suspect]
     Active Substance: MYCOPHENOLATE MOFETIL
     Indication: MESENTERITIS
     Dosage: 3 G/ DAY
     Route: 065
     Dates: start: 2017, end: 2019
  9. PREDNISON [Suspect]
     Active Substance: PREDNISONE
     Dosage: DOSE REDUCED TO 5 MG / DAY
     Route: 065

REACTIONS (4)
  - Synovitis [Unknown]
  - Drug ineffective [Unknown]
  - Arthritis [Unknown]
  - Disease recurrence [Unknown]

NARRATIVE: CASE EVENT DATE: 2020
